FAERS Safety Report 4533284-X (Version None)
Quarter: 2004Q4

REPORT INFORMATION
  Report Type: 
  Country: None (occurrence: None)
  Receive Date: 20041221
  Receipt Date: 20041213
  Transmission Date: 20050328
  Serious: Yes (Other)
  Sender: FDA-Public Use
  Company Number: PHFR2004GB04567

PATIENT
  Age: 67 Year
  Sex: Male
  Weight: 78 kg

DRUGS (3)
  1. TERBINAFINE HCL [Suspect]
     Indication: NAIL TINEA
     Dosage: 250MG/DAY
     Route: 048
     Dates: start: 20041007, end: 20041120
  2. MINOCYCLINE HCL [Suspect]
     Dosage: 100MG/DAY
     Route: 048
  3. THYROXINE [Concomitant]
     Dosage: 100 UG, QD
     Route: 065
     Dates: start: 20040201

REACTIONS (2)
  - PALPITATIONS [None]
  - SUPRAVENTRICULAR TACHYCARDIA [None]
